FAERS Safety Report 8941236 (Version 1)
Quarter: 2012Q4

REPORT INFORMATION
  Report Type: Report from Study
  Country: GB (occurrence: US)
  Receive Date: 20121203
  Receipt Date: 20121203
  Transmission Date: 20130627
  Serious: Yes (Life-Threatening)
  Sender: FDA-Public Use
  Company Number: US-BRISTOL-MYERS SQUIBB COMPANY-17149527

PATIENT
  Age: 61 Year
  Sex: Female
  Weight: 58.96 kg

DRUGS (17)
  1. TAXOL [Suspect]
     Indication: NON-SMALL CELL LUNG CANCER
     Dosage: Last dose:13Mar2007
     Route: 042
     Dates: start: 20061128
  2. CARBOPLATIN [Suspect]
     Indication: NON-SMALL CELL LUNG CANCER
     Dosage: Last dose:13Mar2007
     Route: 042
     Dates: start: 20061128
  3. BEVACIZUMAB [Suspect]
     Indication: NON-SMALL CELL LUNG CANCER
     Dosage: Last dose:13Mar2007
     Route: 042
     Dates: start: 20061128
  4. NAVELBINE [Suspect]
     Indication: NON-SMALL CELL LUNG CANCER
     Dosage: Last dose:15May2007
     Route: 042
     Dates: start: 20070417
  5. GEMCITABINE [Suspect]
  6. MIRAPEX [Concomitant]
     Indication: NEUROPATHY PERIPHERAL
     Route: 048
     Dates: start: 20070130
  7. DARVOCET [Concomitant]
     Indication: PAIN
     Route: 048
     Dates: start: 20070118
  8. DUONEB [Concomitant]
     Indication: CHRONIC OBSTRUCTIVE PULMONARY DISEASE
     Route: 048
     Dates: start: 20061112
  9. FERROUS SULFATE [Concomitant]
     Indication: ANAEMIA
     Route: 048
     Dates: start: 20070228
  10. MORPHINE SULFATE [Concomitant]
     Indication: PAIN
     Route: 048
     Dates: start: 20061226
  11. KYTRIL [Concomitant]
     Indication: NAUSEA
     Route: 048
     Dates: start: 20070109
  12. COMPAZINE [Concomitant]
     Indication: NAUSEA
     Route: 048
     Dates: start: 20061226
  13. ANZEMET [Concomitant]
     Indication: NAUSEA
     Route: 048
     Dates: start: 20070417
  14. KAY CIEL [Concomitant]
     Indication: HYPOKALAEMIA
     Route: 048
     Dates: start: 20070228
  15. SENOKOT [Concomitant]
     Indication: CONSTIPATION
     Route: 048
     Dates: start: 20070228
  16. COUMADIN [Concomitant]
     Indication: PULMONARY EMBOLISM
     Route: 048
     Dates: start: 20070228
  17. DEMEROL [Concomitant]
     Indication: PROPHYLACTIC CHEMOTHERAPY
     Route: 048
     Dates: start: 20070417

REACTIONS (1)
  - Thrombocytopenia [Recovering/Resolving]
